FAERS Safety Report 6121261-7 (Version None)
Quarter: 2009Q1

REPORT INFORMATION
  Report Type: 
  Country: None (occurrence: None)
  Receive Date: 20090317
  Receipt Date: 20090303
  Transmission Date: 20090719
  Serious: Yes (Hospitalization)
  Sender: FDA-Public Use
  Company Number: US-EISAI MEDIAL RESEARCH-E7272-00015-CLI-US

PATIENT
  Age: 28 Year
  Sex: Female
  Weight: 136 kg

DRUGS (2)
  1. ONTAK [Suspect]
     Indication: LYMPHOMA
     Dates: start: 20090217, end: 20090220
  2. RITUXIMAB [Concomitant]
     Dates: start: 20090216, end: 20090223

REACTIONS (4)
  - BLOOD CREATINE PHOSPHOKINASE ABNORMAL [None]
  - FATIGUE [None]
  - MYALGIA [None]
  - MYOSITIS [None]
